FAERS Safety Report 5865771-6 (Version None)
Quarter: 2008Q3

REPORT INFORMATION
  Report Type: 
  Country: None (occurrence: None)
  Receive Date: 20080829
  Receipt Date: 20080822
  Transmission Date: 20090109
  Serious: Yes (Hospitalization)
  Sender: FDA-Public Use
  Company Number: PHHY2008CZ17706

PATIENT
  Sex: Female

DRUGS (2)
  1. FEMARA [Suspect]
  2. MEDROL [Concomitant]

REACTIONS (2)
  - BIOPSY SKIN ABNORMAL [None]
  - TOXIC EPIDERMAL NECROLYSIS [None]
